FAERS Safety Report 4455611-4 (Version None)
Quarter: 2004Q3

REPORT INFORMATION
  Report Type: 
  Country: None (occurrence: None)
  Receive Date: 20040922
  Receipt Date: 20040917
  Transmission Date: 20050211
  Serious: Yes (Other)
  Sender: FDA-Public Use
  Company Number: US-JNJFOC-20040904415

PATIENT
  Sex: Female

DRUGS (6)
  1. RISPERDAL [Suspect]
     Indication: BIPOLAR DISORDER
     Route: 049
  2. DEPAKOTE [Concomitant]
  3. SYNTHROID [Concomitant]
  4. DEPAKOTE [Concomitant]
  5. PAXIL [Concomitant]
  6. LITHIUM [Concomitant]

REACTIONS (36)
  - ABDOMINAL PAIN [None]
  - ANXIETY [None]
  - ASTHENIA [None]
  - BLOOD GLUCOSE INCREASED [None]
  - BLOOD UREA INCREASED [None]
  - BODY TEMPERATURE INCREASED [None]
  - BRONCHITIS [None]
  - CEREBROVASCULAR ACCIDENT [None]
  - CEREBROVASCULAR DISORDER [None]
  - CHRONIC OBSTRUCTIVE AIRWAYS DISEASE EXACERBATED [None]
  - COGNITIVE DETERIORATION [None]
  - COUGH [None]
  - DYSKINESIA [None]
  - DYSPHAGIA [None]
  - DYSTONIA [None]
  - FAECAL INCONTINENCE [None]
  - FALL [None]
  - GAIT DISTURBANCE [None]
  - GASTROINTESTINAL MUCOSAL DISORDER [None]
  - GENERAL PHYSICAL HEALTH DETERIORATION [None]
  - HEART RATE INCREASED [None]
  - HEPATITIS B [None]
  - HYPERGLYCAEMIA [None]
  - MASTICATION DISORDER [None]
  - MENTAL IMPAIRMENT [None]
  - OEDEMA MUCOSAL [None]
  - PAIN IN EXTREMITY [None]
  - PARKINSONISM [None]
  - PLATELET COUNT DECREASED [None]
  - PNEUMONIA [None]
  - POSTURE ABNORMAL [None]
  - PROTEIN URINE PRESENT [None]
  - RESPIRATORY RATE INCREASED [None]
  - TARDIVE DYSKINESIA [None]
  - URINARY INCONTINENCE [None]
  - VENTRICULAR HYPERTROPHY [None]
